FAERS Safety Report 4292387-8 (Version None)
Quarter: 2004Q1

REPORT INFORMATION
  Report Type: 
  Country: None (occurrence: None)
  Receive Date: 20040126
  Receipt Date: 20031107
  Transmission Date: 20041129
  Serious: No
  Sender: FDA-Public Use
  Company Number: USA030845577

PATIENT
  Age: 69 Year
  Sex: Female
  Weight: 73 kg

DRUGS (3)
  1. FORTEO [Suspect]
     Indication: OSTEOPOROSIS
     Dosage: 20UG/ AT NOON
     Dates: start: 20030826, end: 20031023
  2. EVISTA [Suspect]
     Indication: OSTEOPOROSIS
     Dosage: 1 DSG FORM/DAY
     Dates: start: 19980101, end: 20030826
  3. CALCIUM [Concomitant]

REACTIONS (13)
  - AGGRESSION [None]
  - BONE DISORDER [None]
  - BONE PAIN [None]
  - DIARRHOEA [None]
  - DIZZINESS [None]
  - DRUG INEFFECTIVE [None]
  - EXOSTOSIS [None]
  - FATIGUE [None]
  - HEADACHE [None]
  - ILL-DEFINED DISORDER [None]
  - INSOMNIA [None]
  - IRRITABILITY [None]
  - PARAESTHESIA ORAL [None]
